FAERS Safety Report 6843514-7 (Version None)
Quarter: 2010Q3

REPORT INFORMATION
  Report Type: 
  Country: None (occurrence: None)
  Receive Date: 20100712
  Receipt Date: 20100628
  Transmission Date: 20110219
  Serious: Yes (Hospitalization)
  Sender: FDA-Public Use
  Company Number: 2010-2013

PATIENT
  Age: 69 Year
  Sex: Female

DRUGS (12)
  1. APO-GO PFS (APO-GO) (APOMORPHINE HYDROCHLORIDE) (APOMORPHINE HYDROCHLO [Suspect]
     Indication: PARKINSON'S DISEASE
     Dosage: CONTINUOUS (24 HR/DAY) (, CONTINUOUS (24 HR/DAY)), SUBCUTANEOUS
     Route: 058
     Dates: start: 20100101
  2. BUPRENORPHINE (BUPRENORPHINE) [Concomitant]
  3. DOXAZOSIN MESYLATE [Concomitant]
  4. PRAMIPEXOLE DIHYDROCHLORIDE [Concomitant]
  5. SINEMET [Concomitant]
  6. GABAPENTIN [Concomitant]
  7. AMITRIPTYLINE HYDROCHLORIDE [Concomitant]
  8. HYDROCHLOROTHIAZIDE [Concomitant]
  9. VENLAFAXINE HCL [Concomitant]
  10. DOMPERIDONE (DOMPERIDONE) [Concomitant]
  11. GLYBURIDE [Concomitant]
  12. APOMORPHINE (PUMP) (APOMORPHINE) [Concomitant]

REACTIONS (1)
  - MYOCARDIAL INFARCTION [None]
